FAERS Safety Report 19981464 (Version 1)
Quarter: 2021Q4

REPORT INFORMATION
  Report Type: Spontaneous
  Country: US (occurrence: US)
  Receive Date: 20211021
  Receipt Date: 20211021
  Transmission Date: 20220304
  Serious: No
  Sender: FDA-Public Use
  Company Number: US-GLAXOSMITHKLINE-USCH2021072961

PATIENT

DRUGS (1)
  1. ABREVA [Suspect]
     Active Substance: DOCOSANOL
     Indication: Lip disorder
     Dosage: UNK

REACTIONS (4)
  - Lip disorder [Unknown]
  - Condition aggravated [Unknown]
  - Blister [Unknown]
  - Scab [Unknown]
